FAERS Safety Report 19625069 (Version 1)
Quarter: 2021Q3

REPORT INFORMATION
  Report Type: Report from Study
  Country: CO (occurrence: CO)
  Receive Date: 20210729
  Receipt Date: 20210729
  Transmission Date: 20211014
  Serious: Yes (Other)
  Sender: FDA-Public Use
  Company Number: NVSC2021CO143317

PATIENT
  Sex: Male
  Weight: 52 kg

DRUGS (4)
  1. INSULIN [Concomitant]
     Active Substance: INSULIN NOS
     Indication: DIABETES MELLITUS
     Dosage: UNK, Q12H
     Route: 058
  2. TRAYENTA DUO [Concomitant]
     Active Substance: LINAGLIPTIN\METFORMIN HYDROCHLORIDE
     Indication: DIABETES MELLITUS
     Dosage: UNK, QD
     Route: 048
  3. XOLAIR [Suspect]
     Active Substance: OMALIZUMAB
     Indication: ASTHMA
     Dosage: 150 MG, QMO
     Route: 058
  4. TAMSULOSIN [Suspect]
     Active Substance: TAMSULOSIN
     Indication: PROSTATITIS
     Dosage: 0.4 MG, QD
     Route: 048

REACTIONS (6)
  - Cardiomegaly [Unknown]
  - Illness [Unknown]
  - Asthma [Unknown]
  - Off label use [Unknown]
  - Asthmatic crisis [Unknown]
  - Cardiac failure [Unknown]
